FAERS Safety Report 5527392-4 (Version None)
Quarter: 2007Q4

REPORT INFORMATION
  Report Type: 
  Country: None (occurrence: None)
  Receive Date: 20071123
  Receipt Date: 20071114
  Transmission Date: 20080405
  Serious: Yes (Death, Other)
  Sender: FDA-Public Use
  Company Number: 163-21880-07110878

PATIENT
  Age: 65 Year
  Sex: Male

DRUGS (20)
  1. REVLIMID [Suspect]
     Indication: MULTIPLE MYELOMA
     Dosage: 15 MG, DAYS 1-14, ORAL
     Route: 048
     Dates: start: 20070919, end: 20071110
  2. DEXAMETHASONE TAB [Suspect]
     Indication: MULTIPLE MYELOMA
     Dosage: 20 MG, DAYS 1,2,4,5,8,0,11,12, ORAL
     Route: 048
     Dates: start: 20070919, end: 20071110
  3. BORTEZOMIB (BORTEZOMIB) [Suspect]
     Indication: MULTIPLE MYELOMA
     Dosage: 2.3 MG, DAYS 1,4,8,11, INTRAVENOUS
     Route: 042
     Dates: start: 20070919, end: 20071109
  4. VELCADE [Concomitant]
  5. LOPRESSOR [Concomitant]
  6. MEPRON [Concomitant]
  7. NORVASC [Concomitant]
  8. OMEPRAZOLE [Concomitant]
  9. OXYCODONE HCL [Concomitant]
  10. THYROID TAB [Concomitant]
  11. RITALIN [Concomitant]
  12. LOMOTIL [Concomitant]
  13. LASIX [Concomitant]
  14. HYDROCHLORIAZIDE (HYDROCHLOROTHIAZIDE) [Concomitant]
  15. FOLIC ACID [Concomitant]
  16. FLUCONAZOLE [Concomitant]
  17. FAMVIR [Concomitant]
  18. CELEXA [Concomitant]
  19. AREDIA [Concomitant]
  20. ALLOPURINOL [Concomitant]

REACTIONS (4)
  - DISEASE PROGRESSION [None]
  - FEBRILE NEUTROPENIA [None]
  - PNEUMONIA FUNGAL [None]
  - SEPTIC SHOCK [None]
